FAERS Safety Report 16987624 (Version 30)
Quarter: 2025Q3

REPORT INFORMATION
  Report Type: Report from Study
  Country: US (occurrence: US)
  Receive Date: 20191104
  Receipt Date: 20250822
  Transmission Date: 20251021
  Serious: Yes (Hospitalization, Other)
  Sender: TAKEDA
  Company Number: US-SHIRE-US201937040

PATIENT
  Sex: Female
  Weight: 98 kg

DRUGS (44)
  1. HUMAN IMMUNOGLOBULIN G [Suspect]
     Active Substance: HUMAN IMMUNOGLOBULIN G
     Indication: Primary immunodeficiency syndrome
     Dosage: 12 MILLIGRAM, 1/WEEK
     Dates: start: 20190903
  2. HUMAN IMMUNOGLOBULIN G [Suspect]
     Active Substance: HUMAN IMMUNOGLOBULIN G
     Indication: Hypergammaglobulinaemia
     Dosage: 8 GRAM, 1/WEEK
  3. HUMAN IMMUNOGLOBULIN G [Suspect]
     Active Substance: HUMAN IMMUNOGLOBULIN G
     Indication: Immune system disorder
     Dosage: 10 GRAM, 1/WEEK
  4. HUMAN IMMUNOGLOBULIN G [Suspect]
     Active Substance: HUMAN IMMUNOGLOBULIN G
     Dosage: 12 MILLIGRAM, 1/WEEK
     Dates: start: 20190917
  5. HUMAN IMMUNOGLOBULIN G [Suspect]
     Active Substance: HUMAN IMMUNOGLOBULIN G
     Dosage: 11 GRAM, 1/WEEK
  6. BENADRYL [Suspect]
     Active Substance: DIPHENHYDRAMINE HYDROCHLORIDE
     Indication: Product used for unknown indication
  7. ZOFRAN [Suspect]
     Active Substance: ONDANSETRON HYDROCHLORIDE
     Indication: Nausea
  8. AZITHROMYCIN [Suspect]
     Active Substance: AZITHROMYCIN
     Indication: Product used for unknown indication
  9. ACETAMINOPHEN [Concomitant]
     Active Substance: ACETAMINOPHEN
  10. VITAMIN D [Concomitant]
     Active Substance: VITAMIN D NOS
  11. SULFAMETHOXAZOLE\TRIMETHOPRIM [Concomitant]
     Active Substance: SULFAMETHOXAZOLE\TRIMETHOPRIM
  12. EPINEPHRINE [Concomitant]
     Active Substance: EPINEPHRINE
  13. ALBUTEROL SULFATE [Concomitant]
     Active Substance: ALBUTEROL SULFATE
  14. CYANOCOBALAMIN [Concomitant]
     Active Substance: CYANOCOBALAMIN
  15. ARMOUR THYROID [Concomitant]
     Active Substance: THYROID, PORCINE
  16. AMLODIPINE;ATORVASTATIN [Concomitant]
  17. ZANTAC [Concomitant]
     Active Substance: RANITIDINE HYDROCHLORIDE
  18. DICLOFENAC SODIUM [Concomitant]
     Active Substance: DICLOFENAC SODIUM
  19. ASPIRIN [Concomitant]
     Active Substance: ASPIRIN
  20. Lmx [Concomitant]
  21. DIPHENHYDRAMINE HYDROCHLORIDE [Concomitant]
     Active Substance: DIPHENHYDRAMINE HYDROCHLORIDE
  22. DIPHENHYDRAMINE [Concomitant]
     Active Substance: DIPHENHYDRAMINE
     Indication: Product used for unknown indication
  23. FAMOTIDINE [Concomitant]
     Active Substance: FAMOTIDINE
  24. FLUZONE QUADRIVALENT NOS [Concomitant]
     Active Substance: INFLUENZA VIRUS VACCINE
  25. IPRATROPIUM BROMIDE [Concomitant]
     Active Substance: IPRATROPIUM BROMIDE
  26. VITAMIN D2 [Concomitant]
     Active Substance: ERGOCALCIFEROL
  27. VITAMIN C [Concomitant]
     Active Substance: ASCORBIC ACID
  28. IPRATROPIUM [Concomitant]
     Active Substance: IPRATROPIUM
  29. BACTRIM [Concomitant]
     Active Substance: SULFAMETHOXAZOLE\TRIMETHOPRIM
  30. PENICILLIN G [Concomitant]
     Active Substance: PENICILLIN G
  31. MACRODANTIN [Concomitant]
     Active Substance: NITROFURANTOIN
  32. IODINE [Concomitant]
     Active Substance: IODINE
  33. MACROBID [Concomitant]
     Active Substance: NITROFURANTOIN\NITROFURANTOIN MONOHYDRATE
  34. ISOVUE [Concomitant]
     Active Substance: IOPAMIDOL
  35. PREDNISONE [Concomitant]
     Active Substance: PREDNISONE
  36. CODEINE PHOSPHATE [Concomitant]
     Active Substance: CODEINE PHOSPHATE
  37. LEVOTHYROXINE SODIUM [Concomitant]
     Active Substance: LEVOTHYROXINE SODIUM
  38. CLINDAMYCIN [Concomitant]
     Active Substance: CLINDAMYCIN
  39. SYNTHROID [Concomitant]
     Active Substance: LEVOTHYROXINE SODIUM
  40. FLAGYL [Concomitant]
     Active Substance: METRONIDAZOLE\METRONIDAZOLE HYDROCHLORIDE
  41. ATORVASTATIN [Concomitant]
     Active Substance: ATORVASTATIN
  42. Quad care [Concomitant]
  43. TRIMETHOPRIM [Concomitant]
     Active Substance: TRIMETHOPRIM
  44. ALBUTEROL SULFATE [Concomitant]
     Active Substance: ALBUTEROL SULFATE

REACTIONS (30)
  - Brain neoplasm [Unknown]
  - Deafness unilateral [Unknown]
  - Vertigo [Unknown]
  - Device infusion issue [Unknown]
  - Infusion site irritation [Recovered/Resolved]
  - Inappropriate schedule of product administration [Unknown]
  - Obstruction [Unknown]
  - Neoplasm progression [Unknown]
  - Protein total increased [Unknown]
  - Sinus disorder [Not Recovered/Not Resolved]
  - Arthritis [Unknown]
  - Seasonal allergy [Unknown]
  - Brain fog [Unknown]
  - Drug hypersensitivity [Unknown]
  - Oral herpes [Unknown]
  - Tinnitus [Unknown]
  - Nasopharyngitis [Unknown]
  - Urinary tract infection [Unknown]
  - Sinusitis [Not Recovered/Not Resolved]
  - Asthma [Unknown]
  - Cough [Unknown]
  - Pyrexia [Unknown]
  - Vomiting [Unknown]
  - Infusion site pain [Unknown]
  - Infusion site pruritus [Recovered/Resolved]
  - Infusion site erythema [Recovered/Resolved]
  - Dizziness [Unknown]
  - Fatigue [Unknown]
  - Headache [Recovering/Resolving]
  - Nausea [Unknown]
